FAERS Safety Report 6817051-X (Version None)
Quarter: 2010Q3

REPORT INFORMATION
  Report Type: 
  Country: None (occurrence: None)
  Receive Date: 20100706
  Receipt Date: 20100625
  Transmission Date: 20110219
  Serious: Yes (Other)
  Sender: FDA-Public Use
  Company Number: US-JNJFOC-20100405559

PATIENT
  Sex: Female
  Weight: 41.73 kg

DRUGS (7)
  1. REMICADE [Suspect]
     Indication: COLITIS ULCERATIVE
     Route: 042
  2. REMICADE [Suspect]
     Route: 042
  3. REMICADE [Suspect]
     Route: 042
  4. PREDNISONE TAB [Concomitant]
     Dosage: DOSE: TITRATING
  5. PULMICORT [Concomitant]
     Route: 055
  6. XANAX [Concomitant]
  7. BENADRYL [Concomitant]
     Indication: PREMEDICATION

REACTIONS (7)
  - CHEST DISCOMFORT [None]
  - HEADACHE [None]
  - HORNER'S SYNDROME [None]
  - HYPOAESTHESIA FACIAL [None]
  - INFUSION RELATED REACTION [None]
  - MUSCULOSKELETAL DISCOMFORT [None]
  - OROPHARYNGEAL DISCOMFORT [None]
